FAERS Safety Report 7632620-5 (Version None)
Quarter: 2011Q3

REPORT INFORMATION
  Report Type: 
  Country: None (occurrence: None)
  Receive Date: 20110725
  Receipt Date: 20101101
  Transmission Date: 20111222
  Serious: No
  Sender: FDA-Public Use
  Company Number: US-BRISTOL-MYERS SQUIBB COMPANY-15362122

PATIENT
  Age: 56 Year
  Sex: Male

DRUGS (5)
  1. PROTONIX [Suspect]
     Indication: GASTROOESOPHAGEAL REFLUX DISEASE
     Dosage: TABS
     Route: 048
     Dates: start: 20100901
  2. MULTI-VITAMINS [Concomitant]
  3. COUMADIN [Suspect]
     Indication: DEEP VEIN THROMBOSIS
  4. COUMADIN [Suspect]
     Indication: PULMONARY EMBOLISM
  5. LEXAPRO [Suspect]
     Indication: DEPRESSION
     Dosage: TABS
     Route: 048
     Dates: start: 20100901

REACTIONS (1)
  - RASH [None]
